FAERS Safety Report 19490901 (Version 1)
Quarter: 2021Q3

REPORT INFORMATION
  Report Type: Spontaneous
  Country: JP (occurrence: JP)
  Receive Date: 20210705
  Receipt Date: 20210705
  Transmission Date: 20211014
  Serious: Yes (Other)
  Sender: FDA-Public Use
  Company Number: JP-009507513-2106JPN002351J

PATIENT
  Sex: Male

DRUGS (1)
  1. BELSOMRA [Suspect]
     Active Substance: SUVOREXANT
     Indication: INSOMNIA
     Dosage: UNK
     Route: 048
     Dates: start: 202106

REACTIONS (3)
  - Hallucination [Unknown]
  - Abnormal dreams [Unknown]
  - Somnolence [Unknown]

NARRATIVE: CASE EVENT DATE: 202106
